FAERS Safety Report 4853521-1 (Version None)
Quarter: 2005Q4

REPORT INFORMATION
  Report Type: 
  Country: None (occurrence: None)
  Receive Date: 20051212
  Receipt Date: 20051121
  Transmission Date: 20060501
  Serious: Yes (Other)
  Sender: FDA-Public Use
  Company Number: JP_030701391

PATIENT
  Age: 54 Year
  Sex: Male

DRUGS (1)
  1. ZYPREXA [Suspect]
     Indication: DELIRIUM
     Dosage: 2.5 MG, EACH EVENING, ORAL
     Route: 048
     Dates: start: 20020126, end: 20020207

REACTIONS (3)
  - DELIRIUM [None]
  - DISEASE RECURRENCE [None]
  - HYPOTHERMIA [None]
